FAERS Safety Report 4898675-6 (Version None)
Quarter: 2006Q1

REPORT INFORMATION
  Report Type: 
  Country: None (occurrence: None)
  Receive Date: 20060202
  Receipt Date: 20000502
  Transmission Date: 20060701
  Serious: Yes (Death)
  Sender: FDA-Public Use
  Company Number: UG-2000-BP-00742

PATIENT
  Sex: Female

DRUGS (3)
  1. VIRAMUNE [Suspect]
     Indication: ACQUIRED IMMUNODEFICIENCY SYNDROME
     Route: 048
     Dates: start: 20000427, end: 20000427
  2. AZT [Concomitant]
     Indication: HIV INFECTION
     Route: 048
  3. ERGOMETRINE/MATERNAL [Concomitant]
     Indication: HIV INFECTION
     Route: 030

REACTIONS (7)
  - CRYING [None]
  - CYANOSIS [None]
  - FEELING HOT [None]
  - HEPATIC CONGESTION [None]
  - PETECHIAE [None]
  - SEPSIS NEONATAL [None]
  - STAPHYLOCOCCAL SEPSIS [None]
